FAERS Safety Report 5973051-3 (Version None)
Quarter: 2008Q4

REPORT INFORMATION
  Report Type: 
  Country: None (occurrence: None)
  Receive Date: 20081201
  Receipt Date: 20081118
  Transmission Date: 20090506
  Serious: Yes (Hospitalization)
  Sender: FDA-Public Use
  Company Number: FR-ROCHE-599281

PATIENT
  Sex: Female

DRUGS (7)
  1. BONIVA [Suspect]
     Indication: OSTEOPOROTIC FRACTURE
     Route: 048
     Dates: end: 20080801
  2. BONIVA [Suspect]
     Route: 048
     Dates: start: 20080907
  3. AMLOD [Concomitant]
     Dosage: DOSE: ONE DOSE EVERY DAY
     Route: 048
  4. ATACAND [Concomitant]
     Dosage: DOSE: ONE DOSE EVERY DAY
     Route: 048
  5. SIMVASTATIN [Concomitant]
     Dosage: DOSE: 1 DOSE EVERY DAY
     Route: 048
  6. UVEDOSE [Concomitant]
     Indication: OSTEOPOROSIS
     Dosage: STRENGTH: 100 000
     Route: 048
  7. OSTRAM [Concomitant]
     Indication: OSTEOPOROSIS
     Route: 048

REACTIONS (2)
  - ANAEMIA [None]
  - GASTRIC ULCER HAEMORRHAGE [None]
